FAERS Safety Report 7021173-0 (Version None)
Quarter: 2010Q3

REPORT INFORMATION
  Report Type: 
  Country: None (occurrence: None)
  Receive Date: 20100929
  Receipt Date: 20100922
  Transmission Date: 20110219
  Serious: Yes (Other)
  Sender: FDA-Public Use
  Company Number: CHPA2010US15046

PATIENT
  Age: 85 Year
  Sex: Female

DRUGS (1)
  1. THERAFLU VAPOR PATCH (NCH) [Suspect]
     Indication: NASOPHARYNGITIS
     Dosage: 1 DF, ONCE/SINGLE
     Dates: start: 20100921, end: 20100921

REACTIONS (8)
  - ACCIDENTAL EXPOSURE [None]
  - DIZZINESS [None]
  - DYSSTASIA [None]
  - FALL [None]
  - LOSS OF CONSCIOUSNESS [None]
  - NAUSEA [None]
  - VERTIGO [None]
  - WRONG TECHNIQUE IN DRUG USAGE PROCESS [None]
